FAERS Safety Report 7344186-8 (Version None)
Quarter: 2011Q1

REPORT INFORMATION
  Report Type: 
  Country: None (occurrence: None)
  Receive Date: 20110310
  Receipt Date: 20100803
  Transmission Date: 20110831
  Serious: No
  Sender: FDA-Public Use
  Company Number: A0873719A

PATIENT
  Age: 78 Year
  Sex: Male

DRUGS (2)
  1. NICORETTE [Suspect]
  2. NICORETTE [Suspect]

REACTIONS (6)
  - CONDITION AGGRAVATED [None]
  - DEPRESSION [None]
  - GASTRIC DISORDER [None]
  - GASTROINTESTINAL DISORDER [None]
  - IRRITABLE BOWEL SYNDROME [None]
  - INTENTIONAL DRUG MISUSE [None]
